FAERS Safety Report 5603990-4 (Version None)
Quarter: 2008Q1

REPORT INFORMATION
  Report Type: 
  Country: None (occurrence: None)
  Receive Date: 20080123
  Receipt Date: 20080114
  Transmission Date: 20080703
  Serious: Yes (Death)
  Sender: FDA-Public Use
  Company Number: B0503068A

PATIENT
  Age: 18 Year
  Sex: Female

DRUGS (2)
  1. BUPROPION HCL [Suspect]
  2. MAOI (FORMULATION UNKNOWN) MAOI [Suspect]

REACTIONS (3)
  - CARDIO-RESPIRATORY ARREST [None]
  - COMPLETED SUICIDE [None]
  - OVERDOSE [None]
